FAERS Safety Report 22005313 (Version 1)
Quarter: 2023Q1

REPORT INFORMATION
  Report Type: Spontaneous
  Country: US (occurrence: US)
  Receive Date: 20230217
  Receipt Date: 20230217
  Transmission Date: 20230417
  Serious: Yes (Death, Hospitalization)
  Sender: FDA-Public Use
  Company Number: US-ADVANZ PHARMA-202301001018

PATIENT

DRUGS (1)
  1. DIGOXIN [Suspect]
     Active Substance: DIGOXIN
     Dosage: UNK, INGESTION
     Route: 048

REACTIONS (1)
  - Medication error [Fatal]
